FAERS Safety Report 9728260 (Version 1)
Quarter: 2013Q4

REPORT INFORMATION
  Report Type: Spontaneous
  Country: US (occurrence: None)
  Receive Date: 20131203
  Receipt Date: 20131203
  Transmission Date: 20140711
  Serious: Yes (Death)
  Sender: FDA-Public Use
  Company Number: None

PATIENT
  Age: 76 Year
  Sex: Female

DRUGS (11)
  1. LETAIRIS 10MG GILEAD [Suspect]
     Indication: PULMONARY ARTERIAL HYPERTENSION
     Dosage: 10MG, DAILY, ORAL
     Route: 048
     Dates: start: 201006, end: 201311
  2. COLCHICINE [Concomitant]
  3. ALLOPURINOL [Concomitant]
  4. GLIPIZIDE [Concomitant]
  5. SPIRONOLACTONE [Concomitant]
  6. ADCIRCA [Concomitant]
  7. DIGOXIN [Concomitant]
  8. PEPCID [Concomitant]
  9. HYDRALAZINE [Concomitant]
  10. METOLAZONE [Concomitant]
  11. MORPHINE [Concomitant]

REACTIONS (1)
  - Death [None]
